FAERS Safety Report 17168789 (Version 1)
Quarter: 2019Q4

REPORT INFORMATION
  Report Type: Report from Study
  Country: US (occurrence: US)
  Receive Date: 20191218
  Receipt Date: 20191218
  Transmission Date: 20200122
  Serious: Yes (Hospitalization, Other)
  Sender: FDA-Public Use
  Company Number: US-AUROBINDO-AUR-APL-2019-103065

PATIENT
  Age: 66 Year
  Sex: Female
  Weight: 60 kg

DRUGS (5)
  1. EVOMELA [Suspect]
     Active Substance: MELPHALAN HYDROCHLORIDE
     Dosage: 200 MG/M2 (DAY 3, DAY 2)
     Route: 042
     Dates: start: 20191119, end: 20191119
  2. SINGULAIR [Concomitant]
     Active Substance: MONTELUKAST SODIUM
     Indication: PRODUCT USED FOR UNKNOWN INDICATION
     Dosage: TAKE 1 TABLET EVERY DAY
     Route: 048
     Dates: start: 20190630
  3. EVOMELA [Suspect]
     Active Substance: MELPHALAN HYDROCHLORIDE
     Indication: PRIMARY AMYLOIDOSIS
     Dosage: 200 MG/M2 (DAY 3, DAY 2)
     Route: 042
     Dates: start: 20191118, end: 20191118
  4. TESSALON [Concomitant]
     Active Substance: BENZONATATE
     Indication: COUGH
     Dosage: 100 MILLIGRAM, 3 TIMES A DAY
     Route: 048
     Dates: start: 20191111, end: 20191204
  5. ESTRACE [Concomitant]
     Active Substance: ESTRADIOL
     Indication: PRODUCT USED FOR UNKNOWN INDICATION
     Dosage: 1 MILLIGRAM, DAILY
     Route: 048
     Dates: start: 20191114

REACTIONS (2)
  - Pneumonia [Unknown]
  - Abdominal pain [Recovered/Resolved]

NARRATIVE: CASE EVENT DATE: 20191128
